FAERS Safety Report 8157198-1 (Version None)
Quarter: 2012Q1

REPORT INFORMATION
  Report Type: 
  Country: None (occurrence: None)
  Receive Date: 20120222
  Receipt Date: 20120216
  Transmission Date: 20120608
  Serious: Yes (Death, Other)
  Sender: FDA-Public Use
  Company Number: US-BAYER-201039442NA

PATIENT
  Age: 56 Year
  Sex: Male
  Weight: 113.38 kg

DRUGS (20)
  1. METOPROLOL TARTRATE [Concomitant]
     Route: 048
  2. IMDUR [Concomitant]
     Route: 048
  3. COZAAR [Concomitant]
     Route: 048
  4. NITROGLYCERIN [Concomitant]
  5. MANNITOL [Concomitant]
     Dosage: 50 PRIME
     Dates: start: 20060616, end: 20060616
  6. POTASSIUM CHLORIDE [Concomitant]
     Dosage: UNK
     Route: 042
     Dates: start: 20060616
  7. TRASYLOL [Suspect]
     Indication: CORONARY ARTERY BYPASS
     Dosage: 100CC PUMP PRIME
     Route: 042
     Dates: start: 20060616, end: 20060616
  8. LIPITOR [Concomitant]
     Dosage: UNK
     Route: 048
     Dates: start: 20060131
  9. POTASSIUM CHLORIDE [Concomitant]
     Route: 048
  10. LOVENOX [Concomitant]
     Route: 048
  11. DOBUTAMINE HCL [Concomitant]
     Dosage: UNK
     Route: 042
     Dates: start: 20060616, end: 20060616
  12. PROTAMINE SULFATE [Concomitant]
     Dosage: UNK
     Route: 042
     Dates: start: 20060616
  13. PRIMACOR [Concomitant]
     Dosage: UNK
     Route: 042
     Dates: start: 20060616, end: 20060616
  14. INSULIN [INSULIN] [Concomitant]
     Dosage: UNK
     Route: 042
     Dates: start: 20060616
  15. PLAVIX [Concomitant]
     Dosage: UNK
     Route: 048
     Dates: start: 20060131
  16. BUMEX [Concomitant]
     Dosage: UNK
     Route: 048
     Dates: start: 20060615
  17. ASPIRIN [Concomitant]
     Route: 048
  18. DILTIAZEM HCL [Concomitant]
     Dosage: UNK
     Route: 042
     Dates: start: 20060616, end: 20060616
  19. HEPARIN [Concomitant]
     Dosage: UNK
     Route: 042
     Dates: start: 20060616, end: 20060616
  20. DOPAMINE HCL [Concomitant]
     Dosage: UNK
     Route: 042
     Dates: start: 20060616

REACTIONS (18)
  - RENAL IMPAIRMENT [None]
  - RENAL INJURY [None]
  - FEAR [None]
  - HYPERKALAEMIA [None]
  - INTESTINAL ISCHAEMIA [None]
  - STRESS [None]
  - UNEVALUABLE EVENT [None]
  - INJURY [None]
  - CARDIOGENIC SHOCK [None]
  - MULTI-ORGAN FAILURE [None]
  - ANXIETY [None]
  - EMOTIONAL DISTRESS [None]
  - HYPOXIA [None]
  - RENAL FAILURE [None]
  - PAIN [None]
  - RENAL FAILURE ACUTE [None]
  - METABOLIC ACIDOSIS [None]
  - CORONARY ARTERY DISEASE [None]
